FAERS Safety Report 10466441 (Version 1)
Quarter: 2014Q3

REPORT INFORMATION
  Report Type: Spontaneous
  Country: KR (occurrence: KR)
  Receive Date: 20140922
  Receipt Date: 20140922
  Transmission Date: 20150326
  Serious: Yes (Other)
  Sender: FDA-Public Use
  Company Number: KR-JNJFOC-20140912283

PATIENT
  Age: 73 Year
  Sex: Female

DRUGS (1)
  1. DURAGESIC [Suspect]
     Active Substance: FENTANYL
     Indication: PRODUCT USED FOR UNKNOWN INDICATION
     Route: 062
     Dates: start: 20140908

REACTIONS (3)
  - Convulsion [Not Recovered/Not Resolved]
  - Wrong technique in drug usage process [Unknown]
  - Decreased appetite [Not Recovered/Not Resolved]
